FAERS Safety Report 9165620 (Version 1)
Quarter: 2013Q1

REPORT INFORMATION
  Report Type: Spontaneous
  Country: US (occurrence: None)
  Receive Date: 20130227
  Receipt Date: 20130227
  Transmission Date: 20140127
  Serious: Yes (Hospitalization)
  Sender: FDA-Public Use
  Company Number: 2013STPI000065

PATIENT
  Age: 4 Year
  Sex: Male

DRUGS (17)
  1. ONCASPAR [Suspect]
     Dates: start: 20121226, end: 20121226
  2. DASATINIB MONOHYDRATE [Suspect]
     Route: 048
     Dates: start: 20121029, end: 20121227
  3. CYCLOPHOSPHAMIDE (CYCLOPHOSPHAMIDE) [Suspect]
     Route: 042
     Dates: start: 20121029, end: 20121029
  4. MERCAPTOPURINE (MERCAPTOPURINE) [Suspect]
     Route: 048
     Dates: start: 20121029, end: 20121030
  5. CYTARABINE (CYTARABINE) [Suspect]
     Route: 037
     Dates: start: 20121031, end: 20121031
  6. METHOTREXATE SODIUM [Suspect]
     Route: 037
     Dates: start: 20121031, end: 20121031
  7. DEXAMETHASONE [Suspect]
     Route: 048
     Dates: start: 20121221, end: 20121225
  8. LEUCOVORIN CALCIUM [Suspect]
     Dates: start: 20121222, end: 20121224
  9. VINCRISTINE SULFATE (VINCRISTINE SULFATE) [Suspect]
     Route: 042
     Dates: start: 20121222, end: 20121222
  10. HYDROCORTISONE [Suspect]
     Route: 037
     Dates: start: 20121221, end: 20121221
  11. MESNA (MESNA) [Suspect]
     Dates: start: 20121222, end: 20121224
  12. MIRALAX [Suspect]
     Dates: start: 20120927
  13. SULFATRIM (SULFAMETHOXAZOLE, TRIMETHOPRIM) [Concomitant]
  14. ZOFRAN (ONDANSETRON HYDROCHLORIDE) [Concomitant]
  15. HEPARIN SODIUM (HEPARIN SODIUM) [Concomitant]
  16. ENULOSE (LACTULOSE) [Concomitant]
  17. PERIDEX (CHLORHEXIDINE GLUCONATE) [Concomitant]

REACTIONS (6)
  - Febrile neutropenia [None]
  - Viral upper respiratory tract infection [None]
  - Diarrhoea [None]
  - Platelet count decreased [None]
  - Haemoglobin decreased [None]
  - Epistaxis [None]
